FAERS Safety Report 11351126 (Version 1)
Quarter: 2015Q3

REPORT INFORMATION
  Report Type: Spontaneous
  Country: US (occurrence: US)
  Receive Date: 20150807
  Receipt Date: 20150807
  Transmission Date: 20151125
  Serious: No
  Sender: FDA-Public Use
  Company Number: US-JNJFOC-20141119288

PATIENT
  Age: 88 Year
  Sex: Female
  Weight: 67.13 kg

DRUGS (7)
  1. SYNTHROID [Concomitant]
     Active Substance: LEVOTHYROXINE SODIUM
     Indication: THYROID DISORDER
     Dosage: THREE WEEKS
     Route: 065
  2. CALCIUM [Concomitant]
     Active Substance: CALCIUM
     Indication: BONE DISORDER
     Route: 065
  3. CHILDREN^S ASPIRIN [Concomitant]
     Active Substance: ASPIRIN
     Indication: PROPHYLAXIS
     Dosage: YEARS
     Route: 065
  4. MENS ROGAINE EXTRA STRENGTH [Suspect]
     Active Substance: MINOXIDIL
     Route: 061
  5. GARLIC PILL [Concomitant]
     Indication: ROUTINE HEALTH MAINTENANCE
     Dosage: 40 YEARS
     Route: 065
  6. BIOTIN [Concomitant]
     Active Substance: BIOTIN
     Indication: ALOPECIA
     Dosage: 5-6 YEARS
     Route: 065
  7. MENS ROGAINE EXTRA STRENGTH [Suspect]
     Active Substance: MINOXIDIL
     Indication: ALOPECIA
     Dosage: ^USED ABOUT A MARBLE SIZE^ FOR A COUPLE OF DAYS
     Route: 061

REACTIONS (5)
  - Inappropriate schedule of drug administration [Unknown]
  - Drug prescribing error [Unknown]
  - Product use issue [Unknown]
  - Product physical issue [Unknown]
  - Burning sensation [Unknown]

NARRATIVE: CASE EVENT DATE: 2014
